FAERS Safety Report 9361308 (Version 1)
Quarter: 2013Q2

REPORT INFORMATION
  Report Type: Spontaneous
  Country: FR (occurrence: FR)
  Receive Date: 20130621
  Receipt Date: 20130621
  Transmission Date: 20140414
  Serious: Yes (Death)
  Sender: FDA-Public Use
  Company Number: FR-TEVA-413998ISR

PATIENT
  Age: 83 Year
  Sex: Male

DRUGS (5)
  1. FUROSEMIDE TEVA [Suspect]
     Indication: CEREBROVASCULAR ACCIDENT
     Dosage: 120 MILLIGRAM DAILY;
     Route: 048
  2. GABAPENTINE [Concomitant]
  3. IRBESARTAN [Concomitant]
     Dosage: 150 MILLIGRAM DAILY;
  4. PLAVIX [Concomitant]
     Dosage: 75 MILLIGRAM DAILY;
  5. CADUET [Concomitant]

REACTIONS (7)
  - Acute pulmonary oedema [Fatal]
  - Somnolence [Fatal]
  - Multi-organ failure [Fatal]
  - Dyspnoea [Unknown]
  - Cardiac failure [Unknown]
  - Pneumonia aspiration [Unknown]
  - Dyspnoea [Unknown]
